FAERS Safety Report 4572083-X (Version None)
Quarter: 2005Q1

REPORT INFORMATION
  Report Type: 
  Country: None (occurrence: None)
  Receive Date: 20050202
  Receipt Date: 20050111
  Transmission Date: 20050727
  Serious: No
  Sender: FDA-Public Use
  Company Number: USA050188031

PATIENT
  Age: 12 Year
  Sex: Male
  Weight: 64 kg

DRUGS (1)
  1. STRATTERA [Suspect]
     Indication: ATTENTION DEFICIT/HYPERACTIVITY DISORDER
     Dosage: 40 MG

REACTIONS (5)
  - ABDOMINAL PAIN UPPER [None]
  - CHROMATURIA [None]
  - CONSTIPATION [None]
  - NAUSEA [None]
  - URINE ODOUR ABNORMAL [None]
